FAERS Safety Report 9340459 (Version 4)
Quarter: 2013Q3

REPORT INFORMATION
  Report Type: Spontaneous
  Country: JP (occurrence: JP)
  Receive Date: 20130610
  Receipt Date: 20130909
  Transmission Date: 20140515
  Serious: Yes (Other)
  Sender: FDA-Public Use
  Company Number: JP-TEVA-410430ISR

PATIENT
  Age: 80 Year
  Sex: Male
  Weight: 60 kg

DRUGS (3)
  1. AMLODIPINE-OD,TAB,5MG [Suspect]
     Indication: HYPERTENSION
     Dosage: 10 MILLIGRAM DAILY;
     Route: 048
     Dates: start: 20130214, end: 20130516
  2. PRAVASTATIN [Suspect]
     Indication: DYSLIPIDAEMIA
     Dosage: 10 MILLIGRAM DAILY;
     Dates: start: 20130322, end: 20130518
  3. DIOVAN TABLETS ,40MG [Suspect]
     Indication: HYPERTENSION
     Dosage: 80 MILLIGRAM DAILY;
     Route: 048
     Dates: start: 20130227, end: 20130518

REACTIONS (2)
  - Rhabdomyolysis [Not Recovered/Not Resolved]
  - Oedema peripheral [Unknown]
